FAERS Safety Report 7987618-4 (Version None)
Quarter: 2011Q4

REPORT INFORMATION
  Report Type: 
  Country: None (occurrence: None)
  Receive Date: 20111216
  Receipt Date: 20110104
  Transmission Date: 20120403
  Serious: No
  Sender: FDA-Public Use
  Company Number: US-BRISTOL-MYERS SQUIBB COMPANY-15038813

PATIENT
  Age: 37 Year
  Sex: Female
  Weight: 95 kg

DRUGS (1)
  1. ABILIFY [Suspect]
     Route: 048
     Dates: start: 20051114, end: 20051205

REACTIONS (4)
  - DECREASED APPETITE [None]
  - ABDOMINAL PAIN UPPER [None]
  - EYE SWELLING [None]
  - INSOMNIA [None]
